FAERS Safety Report 4512281-4 (Version None)
Quarter: 2004Q4

REPORT INFORMATION
  Report Type: 
  Country: None (occurrence: None)
  Receive Date: 20041129
  Receipt Date: 20040712
  Transmission Date: 20050328
  Serious: Yes (Other)
  Sender: FDA-Public Use
  Company Number: BE-GLAXOSMITHKLINE-B0339544A

PATIENT
  Sex: Female

DRUGS (1)
  1. FLIXONASE [Suspect]
     Indication: RHINITIS ALLERGIC
     Route: 045

REACTIONS (1)
  - INFERTILITY FEMALE [None]
